FAERS Safety Report 13824178 (Version 1)
Quarter: 2017Q3

REPORT INFORMATION
  Report Type: Spontaneous
  Country: US (occurrence: US)
  Receive Date: 20170801
  Receipt Date: 20170801
  Transmission Date: 20171127
  Serious: Yes (Other)
  Sender: FDA-Public Use
  Company Number: None

PATIENT
  Age: 56 Year
  Sex: Female

DRUGS (1)
  1. AVONEX PEN [Suspect]
     Active Substance: INTERFERON BETA-1A
     Indication: MULTIPLE SCLEROSIS
     Dosage: ONE PEN WEEKLY IM
     Route: 030
     Dates: start: 20160504

REACTIONS (3)
  - Injection site reaction [None]
  - Injection site bruising [None]
  - Injection site erythema [None]

NARRATIVE: CASE EVENT DATE: 20170614
